FAERS Safety Report 7534600-7 (Version None)
Quarter: 2011Q2

REPORT INFORMATION
  Report Type: 
  Country: None (occurrence: None)
  Receive Date: 20110609
  Receipt Date: 20100412
  Transmission Date: 20111010
  Serious: Yes (Death)
  Sender: FDA-Public Use
  Company Number: PHHY2009DE51254

PATIENT
  Sex: Female
  Weight: 62 kg

DRUGS (6)
  1. ZOMETA [Suspect]
     Indication: BONE DISORDER
     Dosage: 4 MG, QMO
     Dates: start: 20080627
  2. KATADOLON [Concomitant]
     Dosage: UNK
     Dates: start: 20090303, end: 20090423
  3. GABAPENTIN [Concomitant]
     Dosage: 300 MG, UNK
     Route: 048
     Dates: start: 20090223, end: 20090423
  4. ARIXTRA [Concomitant]
     Dosage: 5 UNK, UNK
  5. CLORAZEPATE DIPOTASSIUM [Concomitant]
     Dosage: UNK
     Dates: start: 20090319, end: 20090423
  6. OMEPRAZOL ^ACYFABRIK^ [Concomitant]
     Dosage: 20 UNK, UNK

REACTIONS (1)
  - DEATH [None]
